FAERS Safety Report 15320382 (Version 1)
Quarter: 2018Q4

REPORT INFORMATION
  Report Type: Spontaneous
  Country: FR (occurrence: FR)
  Receive Date: 20180827
  Receipt Date: 20180827
  Transmission Date: 20190204
  Serious: Yes (Hospitalization)
  Sender: FDA-Public Use
  Company Number: FR-SUN PHARMACEUTICAL INDUSTRIES LTD-2018RR-182644

PATIENT
  Age: 27 Year
  Sex: Female

DRUGS (3)
  1. PARACETAMOL [Suspect]
     Active Substance: ACETAMINOPHEN
     Indication: CELL DEATH
     Dosage: IN TOTAL
     Route: 048
     Dates: start: 20180719, end: 20180719
  2. SERESTA 10 MG, COMPRIME [Suspect]
     Active Substance: OXAZEPAM
     Indication: CELL DEATH
     Dosage: IN TOTAL
     Route: 048
     Dates: start: 20180719, end: 20180719
  3. SERESTA 20 MG, COMPRIME [Suspect]
     Active Substance: OXAZEPAM
     Indication: CELL DEATH
     Dosage: IN TOTAL
     Route: 048
     Dates: start: 20180719, end: 20180719

REACTIONS (3)
  - Toxicity to various agents [Not Recovered/Not Resolved]
  - Somnolence [Recovered/Resolved]
  - Prothrombin time shortened [Not Recovered/Not Resolved]

NARRATIVE: CASE EVENT DATE: 20180719
